FAERS Safety Report 7539746-5 (Version None)
Quarter: 2011Q2

REPORT INFORMATION
  Report Type: 
  Country: None (occurrence: None)
  Receive Date: 20110610
  Receipt Date: 20110531
  Transmission Date: 20111010
  Serious: Yes (Hospitalization, Other)
  Sender: FDA-Public Use
  Company Number: PHHY2009AU54121

PATIENT
  Sex: Male

DRUGS (5)
  1. VALPROATE SODIUM [Concomitant]
     Indication: EPILEPSY
     Dosage: 1500 MG, BID
     Route: 048
  2. CITALOPRAM HYDROBROMIDE [Concomitant]
     Indication: DEPRESSION
     Dosage: 10 MG, UNK
  3. TOPIRAMATE [Concomitant]
     Indication: EPILEPSY
     Dosage: 100 MG, BID
     Route: 048
  4. CLOZAPINE [Suspect]
     Indication: SCHIZOPHRENIA
     Dosage: 225 MG,
     Route: 048
     Dates: start: 20071022
  5. AMISULPRIDE [Concomitant]
     Indication: SCHIZOPHRENIA
     Dosage: 300 MG, UNK
     Route: 048

REACTIONS (17)
  - MENTAL DISORDER [None]
  - BLOOD GLUCOSE INCREASED [None]
  - WHITE BLOOD CELL COUNT INCREASED [None]
  - INTENTIONAL OVERDOSE [None]
  - HALLUCINATION, AUDITORY [None]
  - MEAN CELL HAEMOGLOBIN DECREASED [None]
  - MENTAL IMPAIRMENT [None]
  - DECREASED APPETITE [None]
  - BLOOD CHOLESTEROL INCREASED [None]
  - PLATELET COUNT DECREASED [None]
  - PSYCHOTIC DISORDER [None]
  - SUICIDAL IDEATION [None]
  - WEIGHT DECREASED [None]
  - MALAISE [None]
  - NEUTROPHIL COUNT INCREASED [None]
  - ANTIPSYCHOTIC DRUG LEVEL BELOW THERAPEUTIC [None]
  - HYPERSOMNIA [None]
